FAERS Safety Report 9593107 (Version 1)
Quarter: 2013Q4

REPORT INFORMATION
  Report Type: Spontaneous
  Country: BR (occurrence: BR)
  Receive Date: 20131004
  Receipt Date: 20131004
  Transmission Date: 20140711
  Serious: Yes (Death)
  Sender: FDA-Public Use
  Company Number: BR-BAYER-2013-116376

PATIENT
  Age: 32 Year
  Sex: Female

DRUGS (1)
  1. NEXAVAR [Suspect]
     Indication: MEDULLARY THYROID CANCER
     Dosage: UNK
     Route: 048

REACTIONS (2)
  - Depilation [Fatal]
  - Off label use [None]
